FAERS Safety Report 7279296-7 (Version None)
Quarter: 2011Q1

REPORT INFORMATION
  Report Type: 
  Country: None (occurrence: None)
  Receive Date: 20110207
  Receipt Date: 20110124
  Transmission Date: 20110831
  Serious: Yes (Other)
  Sender: FDA-Public Use
  Company Number: CA-GENENTECH-288171

PATIENT
  Sex: Female
  Weight: 55 kg

DRUGS (4)
  1. ADVAIR [Concomitant]
     Indication: PRODUCT USED FOR UNKNOWN INDICATION
  2. OMALIZUMAB [Suspect]
     Indication: ALLERGY TO ANIMAL
     Dosage: 150 MG, 1/MONTH
     Dates: start: 20090727
  3. OMALIZUMAB [Suspect]
     Indication: ASTHMA
     Dosage: 150 MG, 1/MONTH
     Route: 058
     Dates: start: 20071105
  4. OMALIZUMAB [Suspect]
     Dosage: 150 MG, 1/MONTH
     Dates: start: 20101229

REACTIONS (10)
  - SOMNOLENCE [None]
  - WHEEZING [None]
  - ASTHMA [None]
  - COUGH [None]
  - LARYNGITIS [None]
  - LOWER RESPIRATORY TRACT INFECTION [None]
  - DYSPNOEA [None]
  - LETHARGY [None]
  - PRODUCTIVE COUGH [None]
  - NASOPHARYNGITIS [None]
